FAERS Safety Report 8244699-0 (Version None)
Quarter: 2012Q1

REPORT INFORMATION
  Report Type: 
  Country: None (occurrence: None)
  Receive Date: 20120329
  Receipt Date: 20110307
  Transmission Date: 20120608
  Serious: No
  Sender: FDA-Public Use
  Company Number: US-MYLANLABS-2011S1002415

PATIENT
  Age: 53 Year
  Sex: Female

DRUGS (6)
  1. FENTANYL-100 [Suspect]
     Indication: BACK PAIN
     Dosage: Q 72 HOURS
     Route: 062
  2. PERCOCET [Concomitant]
     Indication: BREAKTHROUGH PAIN
  3. SYNTHROID [Concomitant]
     Indication: HYPOTHYROIDISM
     Dates: start: 20080101
  4. FENTANYL-100 [Suspect]
     Dosage: Q 72 HOURS
     Route: 062
  5. FENTANYL-100 [Suspect]
     Indication: ARTHRALGIA
     Dosage: Q 72 HOURS
     Route: 062
  6. FENTANYL-100 [Suspect]
     Dosage: Q 72 HOURS
     Route: 062

REACTIONS (3)
  - CHILLS [None]
  - HYPERHIDROSIS [None]
  - HOT FLUSH [None]
